FAERS Safety Report 7832406-2 (Version None)
Quarter: 2011Q4

REPORT INFORMATION
  Report Type: 
  Country: None (occurrence: None)
  Receive Date: 20111022
  Receipt Date: 20111014
  Transmission Date: 20120403
  Serious: Yes (Death, Other)
  Sender: FDA-Public Use
  Company Number: US-BAYER-200940339NA

PATIENT
  Age: 64 Year
  Sex: Female
  Weight: 96.599 kg

DRUGS (27)
  1. XANAX [Concomitant]
     Dosage: .25 MG, BID
  2. LIBRAX [Concomitant]
  3. COUMADIN [Concomitant]
  4. PROTAMINE SULFATE [Concomitant]
     Dosage: 250 MG
     Dates: start: 19981120
  5. INSULIN [Concomitant]
     Dosage: 250 UNITS IN 250 CC
     Route: 041
     Dates: start: 19981120
  6. SODIUM NITROPRUSSIDE [Concomitant]
     Dosage: 50 MG IN 250 CC
     Route: 041
     Dates: start: 19981120
  7. RED BLOOD CELLS [Concomitant]
     Dosage: 2 UNITS
     Dates: start: 19981120
  8. LASIX [Concomitant]
     Dosage: 20 MG
     Route: 042
     Dates: start: 19981120
  9. PLASMANATE [Concomitant]
     Dosage: 1500 CC PRIME PUMP
     Route: 050
     Dates: start: 19981120
  10. TRASYLOL [Suspect]
     Indication: ENDARTERECTOMY
     Dosage: 50 CC/HOUR
     Route: 042
     Dates: start: 19981120, end: 19981120
  11. HEPARIN [Concomitant]
     Dosage: 10,000 UNITS PRIME PUMP
     Route: 050
     Dates: start: 19981120
  12. VANCOMYCIN HCL [Concomitant]
     Dosage: 1 GM
     Dates: start: 19981120
  13. TRASYLOL [Suspect]
     Indication: MITRAL VALVE REPLACEMENT
     Dosage: 200 ML LOADING DOSE
     Route: 042
     Dates: start: 19981120, end: 19981120
  14. PREVACID [Concomitant]
     Dosage: 30 MG, QD
  15. NOREPINEPHRINE BITARTRATE [Concomitant]
     Dosage: UNK
     Dates: start: 19981120
  16. THALLIUM (201 TL) [Concomitant]
     Dosage: UNK
     Dates: start: 19980505
  17. MIDAZOLAM HCL [Concomitant]
     Dosage: UNK
     Dates: start: 19981120
  18. TRASYLOL [Suspect]
     Indication: CORONARY ARTERY BYPASS
     Dosage: 1 ML TEST DOSE
     Route: 042
     Dates: start: 19981120, end: 19981120
  19. LASIX [Concomitant]
     Dosage: 40 MG, QD
  20. NITROGLYCERIN [Concomitant]
  21. EPINEPHRINE [Concomitant]
     Dosage: UNK
     Dates: start: 19981120
  22. DOPAMINE HCL [Concomitant]
     Dosage: 400 MG IN 250 CC
     Route: 041
     Dates: start: 19981120
  23. TENORMIN [Concomitant]
     Dosage: 50 MG, QD
  24. NITROGLYCERIN [Concomitant]
     Dosage: 50 MG IN 250 CC
     Route: 041
     Dates: start: 19981120
  25. MANNITOL [Concomitant]
     Dosage: UNK
     Dates: start: 19981120
  26. PRAVACHOL [Concomitant]
     Dosage: 40 MG, QD
  27. OMNIPAQUE 140 [Concomitant]
     Dosage: 110CC/150CC
     Route: 042
     Dates: start: 19981117

REACTIONS (13)
  - MULTI-ORGAN FAILURE [None]
  - FEAR [None]
  - RENAL FAILURE [None]
  - STRESS [None]
  - EMOTIONAL DISTRESS [None]
  - INJURY [None]
  - DEATH [None]
  - ANXIETY [None]
  - ANHEDONIA [None]
  - UNEVALUABLE EVENT [None]
  - RENAL INJURY [None]
  - RENAL IMPAIRMENT [None]
  - PAIN [None]
